FAERS Safety Report 6648758-5 (Version None)
Quarter: 2010Q1

REPORT INFORMATION
  Report Type: 
  Country: None (occurrence: None)
  Receive Date: 20100324
  Receipt Date: 20100312
  Transmission Date: 20100710
  Serious: Yes (Hospitalization)
  Sender: FDA-Public Use
  Company Number: IT-PFIZER INC-2010032843

PATIENT
  Sex: Male

DRUGS (4)
  1. SUTENT [Suspect]
     Indication: RENAL CELL CARCINOMA
     Dosage: 50 MG
  2. LASIX [Concomitant]
  3. NORVASC [Concomitant]
  4. ALLOPURINOL [Concomitant]

REACTIONS (1)
  - CARDIAC FAILURE [None]
